FAERS Safety Report 4874126-2 (Version None)
Quarter: 2006Q1

REPORT INFORMATION
  Report Type: 
  Country: None (occurrence: None)
  Receive Date: 20060106
  Receipt Date: 20051229
  Transmission Date: 20060701
  Serious: Yes (Other)
  Sender: FDA-Public Use
  Company Number: DE-JNJFOC-20050606818

PATIENT
  Age: 17 Year
  Sex: Male

DRUGS (12)
  1. HALOPERIDOL [Suspect]
     Dosage: 5-10 MG AS NEEDED
     Route: 048
  2. HALOPERIDOL [Suspect]
     Route: 048
  3. HALOPERIDOL [Suspect]
     Route: 048
  4. HALOPERIDOL [Suspect]
     Route: 048
  5. HALOPERIDOL DECANOATE [Suspect]
     Dosage: CONCENTRATION: 50 MG/ML
     Route: 030
  6. HALOPERIDOL DECANOATE [Suspect]
     Dosage: CONCENTRATION: 50 MG/ML
     Route: 030
  7. RISPERDAL [Suspect]
     Dosage: PATIENT RECEIVED BETWEEN 2 AND 4 MG
     Route: 048
  8. RISPERDAL [Suspect]
     Route: 048
  9. RISPERDAL [Suspect]
     Route: 048
  10. EUNERPAN [Interacting]
     Indication: DRUG USE FOR UNKNOWN INDICATION
     Route: 048
  11. TEGRETOL [Concomitant]
     Route: 048
  12. AKINETON [Concomitant]
     Route: 048

REACTIONS (4)
  - DRUG INTERACTION [None]
  - MUSCLE SPASMS [None]
  - OCULOGYRATION [None]
  - OROPHARYNGEAL SPASM [None]
